FAERS Safety Report 9223344 (Version 1)
Quarter: 2013Q2

REPORT INFORMATION
  Report Type: Spontaneous
  Country: US (occurrence: US)
  Receive Date: 20130410
  Receipt Date: 20130410
  Transmission Date: 20140414
  Serious: Yes (Other)
  Sender: FDA-Public Use
  Company Number: US-CELGENEUS-163-50794-13040202

PATIENT
  Sex: 0

DRUGS (6)
  1. VIDAZA [Suspect]
     Indication: ACUTE MYELOID LEUKAEMIA RECURRENT
     Dosage: 30MG/M2
     Route: 041
  2. VIDAZA [Suspect]
     Dosage: 50MG/M2
     Route: 065
  3. VIDAZA [Suspect]
     Dosage: 75MG/M2
     Route: 065
  4. ETOPOSIDE [Suspect]
     Indication: ACUTE MYELOID LEUKAEMIA RECURRENT
     Dosage: 80 MILLIGRAM/SQ. METER
     Route: 065
  5. CYTARABINE [Suspect]
     Indication: ACUTE MYELOID LEUKAEMIA RECURRENT
     Dosage: 1G/M2
     Route: 065
  6. MITOXANTRONE [Suspect]
     Indication: ACUTE MYELOID LEUKAEMIA RECURRENT
     Dosage: 6 MILLIGRAM/SQ. METER
     Route: 065

REACTIONS (7)
  - Blood bilirubin increased [Unknown]
  - Aspartate aminotransferase increased [Unknown]
  - Alanine aminotransferase increased [Unknown]
  - Bone marrow failure [Unknown]
  - Infection [Unknown]
  - Diarrhoea [Unknown]
  - Vomiting [Unknown]
